FAERS Safety Report 6105730-1 (Version None)
Quarter: 2009Q1

REPORT INFORMATION
  Report Type: 
  Country: None (occurrence: None)
  Receive Date: 20090306
  Receipt Date: 20090225
  Transmission Date: 20090719
  Serious: Yes (Other)
  Sender: FDA-Public Use
  Company Number: ES-CELGENEUS-144-21880-09021630

PATIENT

DRUGS (1)
  1. REVLIMID [Suspect]
     Indication: MYELOFIBROSIS
     Route: 048

REACTIONS (3)
  - ANAEMIA [None]
  - BLOOD LACTATE DEHYDROGENASE INCREASED [None]
  - NO THERAPEUTIC RESPONSE [None]
